FAERS Safety Report 8567271-1 (Version None)
Quarter: 2012Q3

REPORT INFORMATION
  Report Type: 
  Country: None (occurrence: None)
  Receive Date: 20120803
  Receipt Date: 20120719
  Transmission Date: 20120928
  Serious: Yes (Other)
  Sender: FDA-Public Use
  Company Number: CHPA2012US009917

PATIENT
  Sex: Male
  Weight: 112.38 kg

DRUGS (3)
  1. ALLEGRA [Concomitant]
     Indication: HYPERSENSITIVITY
     Dosage: UNK
  2. EXCEDRIN EXTRA STRENGTH TABLETS [Suspect]
     Indication: PAIN
     Dosage: 1 DF, UNK
     Route: 048
  3. EXCEDRIN EXTRA STRENGTH TABLETS [Suspect]
     Dosage: 2 DF AT A TIME FOR A TOTAL OF 4-6 QD
     Route: 048
     Dates: start: 20020101

REACTIONS (18)
  - NEUROPATHY PERIPHERAL [None]
  - ARTERIOSCLEROSIS CORONARY ARTERY [None]
  - HEADACHE [None]
  - OFF LABEL USE [None]
  - SLEEP APNOEA SYNDROME [None]
  - BENIGN PROSTATIC HYPERPLASIA [None]
  - SYNOVIAL CYST [None]
  - UNDERDOSE [None]
  - LACRIMATION INCREASED [None]
  - DIABETES MELLITUS [None]
  - ARTERIAL OCCLUSIVE DISEASE [None]
  - CARPAL TUNNEL SYNDROME [None]
  - OEDEMA PERIPHERAL [None]
  - INCORRECT DRUG ADMINISTRATION DURATION [None]
  - SJOGREN'S SYNDROME [None]
  - FATIGUE [None]
  - POLLAKIURIA [None]
  - WEIGHT DECREASED [None]
